FAERS Safety Report 7346662-0 (Version None)
Quarter: 2011Q1

REPORT INFORMATION
  Report Type: 
  Country: None (occurrence: None)
  Receive Date: 20110311
  Receipt Date: 20110301
  Transmission Date: 20110831
  Serious: Yes (Hospitalization)
  Sender: FDA-Public Use
  Company Number: US-JNJFOC-20110206619

PATIENT
  Sex: Female
  Weight: 68.04 kg

DRUGS (6)
  1. INFLIXIMAB, RECOMBINANT [Suspect]
     Route: 042
  2. INFLIXIMAB, RECOMBINANT [Suspect]
     Route: 042
  3. INFLIXIMAB, RECOMBINANT [Suspect]
     Route: 042
  4. INFLIXIMAB, RECOMBINANT [Suspect]
     Indication: CROHN'S DISEASE
     Route: 042
  5. PREDNISONE [Concomitant]
     Route: 065
  6. CERTOLIZUMAB [Concomitant]
     Indication: CROHN'S DISEASE
     Route: 065

REACTIONS (3)
  - PNEUMONIA [None]
  - CROHN'S DISEASE [None]
  - ILEAL PERFORATION [None]
